FAERS Safety Report 8600470-9 (Version None)
Quarter: 2012Q3

REPORT INFORMATION
  Report Type: 
  Country: None (occurrence: None)
  Receive Date: 20120817
  Receipt Date: 20120809
  Transmission Date: 20120928
  Serious: No
  Sender: FDA-Public Use
  Company Number: US-ELI_LILLY_AND_COMPANY-US201205005233

PATIENT
  Sex: Female
  Weight: 46.712 kg

DRUGS (2)
  1. ZOLOFT [Concomitant]
     Dosage: 200 MG, QD
  2. STRATTERA [Suspect]
     Indication: ATTENTION DEFICIT/HYPERACTIVITY DISORDER
     Dosage: 36 MG, QD
     Dates: start: 20091012

REACTIONS (2)
  - DYSGEUSIA [None]
  - GASTROENTERITIS VIRAL [None]
